FAERS Safety Report 17444203 (Version 1)
Quarter: 2020Q1

REPORT INFORMATION
  Report Type: Spontaneous
  Country: US (occurrence: US)
  Receive Date: 20200206
  Receipt Date: 20200206
  Transmission Date: 20200409
  Serious: Yes (Other)
  Sender: FDA-Public Use
  Company Number: None

PATIENT
  Age: 64 Year
  Sex: Female
  Weight: 63.5 kg

DRUGS (10)
  1. NP THYROID [Concomitant]
     Active Substance: LEVOTHYROXINE\LIOTHYRONINE
  2. HYDROCHLOROTHIAZIDE. [Concomitant]
     Active Substance: HYDROCHLOROTHIAZIDE
  3. FLUROSEMIDE [Concomitant]
  4. PROGESTERONE. [Concomitant]
     Active Substance: PROGESTERONE
  5. ESTRACE [Concomitant]
     Active Substance: ESTRADIOL
  6. VIT D [Concomitant]
     Active Substance: VITAMIN D NOS
  7. RED YEAST RICE [Concomitant]
     Active Substance: DIETARY SUPPLEMENT
  8. ESTRADIOL CREAM [Suspect]
     Active Substance: ESTRADIOL HEMIHYDRATE
     Indication: HORMONE REPLACEMENT THERAPY
     Dosage: ?          QUANTITY:42.5 G GRAM(S);?
     Route: 067
     Dates: start: 20180320, end: 20180415
  9. FISH OIL [Concomitant]
     Active Substance: FISH OIL
  10. PROBIOTICS [Concomitant]
     Active Substance: PROBIOTICS NOS

REACTIONS (5)
  - Abdominal distension [None]
  - Mood swings [None]
  - Alopecia [None]
  - Nervousness [None]
  - Weight increased [None]

NARRATIVE: CASE EVENT DATE: 20180327
